FAERS Safety Report 25247389 (Version 1)
Quarter: 2025Q2

REPORT INFORMATION
  Report Type: Spontaneous
  Country: US (occurrence: US)
  Receive Date: 20250428
  Receipt Date: 20250428
  Transmission Date: 20250717
  Serious: No
  Sender: NOVARTIS
  Company Number: US-002147023-NVSC2025US067437

PATIENT
  Age: 60 Year
  Sex: Female
  Weight: 135 kg

DRUGS (1)
  1. KISQALI [Suspect]
     Active Substance: RIBOCICLIB SUCCINATE
     Indication: Breast cancer
     Route: 065
     Dates: start: 20241104

REACTIONS (3)
  - Nasal dryness [Unknown]
  - Xerosis [Unknown]
  - Oral mucosal blistering [Unknown]
